FAERS Safety Report 16770764 (Version 2)
Quarter: 2019Q4

REPORT INFORMATION
  Report Type: Report from Study
  Country: BR (occurrence: BR)
  Receive Date: 20190904
  Receipt Date: 20191004
  Transmission Date: 20200122
  Serious: Yes (Other)
  Sender: FDA-Public Use
  Company Number: BR-EMD SERONO-9097151

PATIENT
  Age: 41 Year
  Sex: Female

DRUGS (7)
  1. OMEPRAZOLE. [Concomitant]
     Active Substance: OMEPRAZOLE
     Indication: PRODUCT USED FOR UNKNOWN INDICATION
  2. IBUPROFEN. [Concomitant]
     Active Substance: IBUPROFEN
     Indication: PRODUCT USED FOR UNKNOWN INDICATION
  3. ZOLPIDEM [Concomitant]
     Active Substance: ZOLPIDEM TARTRATE
     Indication: PRODUCT USED FOR UNKNOWN INDICATION
  4. DIPYRONE [Concomitant]
     Active Substance: DIPYRONE
     Indication: PRODUCT USED FOR UNKNOWN INDICATION
  5. DOMPERIDONE [Concomitant]
     Active Substance: DOMPERIDONE
     Indication: PRODUCT USED FOR UNKNOWN INDICATION
  6. REBIF [Suspect]
     Active Substance: INTERFERON BETA-1A
     Indication: MULTIPLE SCLEROSIS
     Route: 058
     Dates: start: 20190510, end: 20190715
  7. VITAMIN D                          /00107901/ [Concomitant]
     Active Substance: ERGOCALCIFEROL
     Indication: PRODUCT USED FOR UNKNOWN INDICATION
     Dosage: 5000IU

REACTIONS (11)
  - Serum ferritin increased [Recovering/Resolving]
  - Pain [Recovering/Resolving]
  - Bladder discomfort [Not Recovered/Not Resolved]
  - Gamma-glutamyltransferase increased [Recovering/Resolving]
  - Alanine aminotransferase increased [Recovering/Resolving]
  - Headache [Recovering/Resolving]
  - Pollakiuria [Not Recovered/Not Resolved]
  - Aspartate aminotransferase increased [Recovering/Resolving]
  - Drug-induced liver injury [Recovering/Resolving]
  - Cervical dysplasia [Not Recovered/Not Resolved]
  - Chills [Recovering/Resolving]

NARRATIVE: CASE EVENT DATE: 2019
